FAERS Safety Report 10201320 (Version 1)
Quarter: 2014Q2

REPORT INFORMATION
  Report Type: Spontaneous
  Country: US (occurrence: US)
  Receive Date: 20140528
  Receipt Date: 20140528
  Transmission Date: 20141212
  Serious: Yes (Other)
  Sender: FDA-Public Use
  Company Number: US-SA-2014SA066444

PATIENT
  Age: 84 Year
  Sex: Female

DRUGS (3)
  1. LANTUS SOLOSTAR [Suspect]
     Indication: DIABETES MELLITUS
     Dosage: EVERY MORNING DOSE:68 UNIT(S)
     Route: 065
  2. SOLOSTAR [Concomitant]
  3. APIDRA SOLOSTAR [Concomitant]
     Dosage: EVERY MORNING DOSE:6 UNIT(S)

REACTIONS (1)
  - Renal failure [Not Recovered/Not Resolved]
